FAERS Safety Report 20690340 (Version 2)
Quarter: 2022Q3

REPORT INFORMATION
  Report Type: Report from Study
  Country: BR (occurrence: BR)
  Receive Date: 20220408
  Receipt Date: 20220909
  Transmission Date: 20221027
  Serious: Yes (Hospitalization, Other)
  Sender: FDA-Public Use
  Company Number: BR-JNJFOC-20220401834

PATIENT
  Age: 48 Year
  Sex: Male
  Weight: 53 kg

DRUGS (2)
  1. INFLIXIMAB [Suspect]
     Active Substance: INFLIXIMAB
     Indication: Crohn^s disease
     Dosage: 3 VIALS EVERY 8 WEEKS
  2. REMICADE [Suspect]
     Active Substance: INFLIXIMAB
     Indication: Crohn^s disease
     Route: 041
     Dates: start: 20180110

REACTIONS (10)
  - Haemorrhage [Unknown]
  - Renal impairment [Unknown]
  - Thrombosis [Unknown]
  - Myocardial infarction [Unknown]
  - Gastrointestinal neoplasm [Unknown]
  - Toxicity to various agents [Unknown]
  - Pharyngitis [Unknown]
  - Pupillary reflex impaired [Unknown]
  - Inadequate diet [Unknown]
  - Hypotension [Unknown]

NARRATIVE: CASE EVENT DATE: 20201101
